FAERS Safety Report 5500729-8 (Version None)
Quarter: 2007Q4

REPORT INFORMATION
  Report Type: 
  Country: None (occurrence: None)
  Receive Date: 20071029
  Receipt Date: 20071023
  Transmission Date: 20080405
  Serious: Yes (Life-Threatening)
  Sender: FDA-Public Use
  Company Number: JP-ASTRAZENECA-2007AP06408

PATIENT
  Age: 20493 Day
  Sex: Male

DRUGS (16)
  1. IRESSA [Suspect]
     Indication: LUNG ADENOCARCINOMA
     Route: 048
     Dates: start: 20070815
  2. OPSO [Concomitant]
     Indication: CANCER PAIN
     Route: 048
     Dates: start: 20070812
  3. PANTOSIN [Concomitant]
     Indication: CONSTIPATION
     Route: 048
     Dates: start: 20070814
  4. MAGNESIUM OXIDE [Concomitant]
     Indication: CONSTIPATION
     Route: 048
     Dates: start: 20070814
  5. AMLODIPINE [Concomitant]
     Indication: HYPERTENSION
     Route: 048
     Dates: start: 20070814
  6. PRIMPERAN [Concomitant]
     Indication: VOMITING
     Route: 048
     Dates: start: 20070815
  7. ISOBIDE [Concomitant]
     Indication: INTRACRANIAL PRESSURE INCREASED
     Route: 048
     Dates: start: 20070923
  8. NITRAZEPAM [Concomitant]
     Indication: INSOMNIA
     Route: 048
     Dates: start: 20070701
  9. SERENACE [Concomitant]
     Indication: INSOMNIA
     Route: 048
     Dates: start: 20070701
  10. TRAVELMIN [Concomitant]
     Indication: INSOMNIA
     Route: 048
     Dates: start: 20070701
  11. DUROTEP [Concomitant]
     Indication: CANCER PAIN
     Route: 062
     Dates: start: 20070701
  12. GLYCEROL 2.6% [Concomitant]
     Indication: INTRACRANIAL PRESSURE INCREASED
     Route: 041
     Dates: start: 20070701
  13. RINDERON [Concomitant]
     Indication: LUNG ADENOCARCINOMA
     Route: 041
     Dates: start: 20070701
  14. BIOFERMIN [Concomitant]
     Indication: DIARRHOEA
     Route: 048
     Dates: start: 20070925, end: 20071003
  15. ADSORBIN [Concomitant]
     Indication: DIARRHOEA
     Route: 048
     Dates: start: 20070925, end: 20071003
  16. TANNALBIN [Concomitant]
     Indication: DIARRHOEA
     Route: 048
     Dates: start: 20070925, end: 20071003

REACTIONS (1)
  - AORTIC DISSECTION [None]
